FAERS Safety Report 5581830-X (Version None)
Quarter: 2008Q1

REPORT INFORMATION
  Report Type: 
  Country: None (occurrence: None)
  Receive Date: 20080104
  Receipt Date: 20071226
  Transmission Date: 20080703
  Serious: Yes (Other)
  Sender: FDA-Public Use
  Company Number: BR-PFIZER INC-2007107678

PATIENT
  Sex: Female
  Weight: 47 kg

DRUGS (1)
  1. CELEBRA [Suspect]
     Indication: ARTHRALGIA
     Route: 048
     Dates: start: 20071210, end: 20071219

REACTIONS (6)
  - AGITATION [None]
  - FORMICATION [None]
  - INFLUENZA LIKE ILLNESS [None]
  - LABYRINTHITIS [None]
  - PAIN [None]
  - RHINITIS [None]
